FAERS Safety Report 8155409 (Version 5)
Quarter: 2012Q4

REPORT INFORMATION
  Report Type: 
  Country: US (occurrence: US)
  Receive Date: 20110926
  Receipt Date: 20120831
  Transmission Date: 20130627
  Serious: Yes (Hospitalization, Other)
  Sender: FDA-Public Use
  Company Number: US-BAYER-2011-085360

PATIENT
  Age: 62 Year
  Sex: Female
  Weight: 91 kg

DRUGS (3)
  1. BAYER ADVANCED ASPIRIN EXTRA STRENGTH [Suspect]
     Indication: PAIN IN EXTREMITY
     Dosage: 500 mg, ONCE
     Route: 048
     Dates: start: 20110901, end: 20110917
  2. BAYER ADVANCED ASPIRIN EXTRA STRENGTH [Suspect]
     Indication: RESTLESS LEGS SYNDROME
     Dosage: 500 mg, ONCE
     Route: 048
     Dates: start: 20110911
  3. ANTIHISTAMINES [Concomitant]

REACTIONS (12)
  - Oropharyngeal discomfort [None]
  - Foreign body [Not Recovered/Not Resolved]
  - Pharyngeal oedema [Not Recovered/Not Resolved]
  - Throat irritation [Not Recovered/Not Resolved]
  - Throat irritation [Not Recovered/Not Resolved]
  - Dysphonia [Recovering/Resolving]
  - Respiratory tract inflammation [None]
  - Dyspnoea [None]
  - Increased upper airway secretion [None]
  - Asthma [Not Recovered/Not Resolved]
  - Cough [Not Recovered/Not Resolved]
  - Dysphonia [Not Recovered/Not Resolved]
